FAERS Safety Report 21718729 (Version 2)
Quarter: 2022Q4

REPORT INFORMATION
  Report Type: Report from Study
  Country: US (occurrence: US)
  Receive Date: 20221213
  Receipt Date: 20221213
  Transmission Date: 20230112
  Serious: No
  Sender: FDA-Public Use
  Company Number: US-ABBVIE-4205470

PATIENT
  Sex: Female

DRUGS (2)
  1. HUMIRA [Suspect]
     Active Substance: ADALIMUMAB
     Indication: Crohn^s disease
     Dosage: FORM STRENGTH: 40 MG
     Route: 058
  2. HUMIRA [Suspect]
     Active Substance: ADALIMUMAB
     Dosage: FORM STRENGTH: 40 MG
     Route: 058

REACTIONS (12)
  - Gastrointestinal pain [Recovered/Resolved]
  - Viral infection [Recovering/Resolving]
  - Drug ineffective [Not Recovered/Not Resolved]
  - Inflammatory marker increased [Unknown]
  - COVID-19 [Recovered/Resolved]
  - Therapeutic response shortened [Unknown]
  - Anxiety [Not Recovered/Not Resolved]
  - Injection site rash [Recovering/Resolving]
  - Frequent bowel movements [Unknown]
  - Diarrhoea [Unknown]
  - Faeces discoloured [Unknown]
  - Anorectal discomfort [Unknown]

NARRATIVE: CASE EVENT DATE: 20220101
